FAERS Safety Report 6703254-1 (Version None)
Quarter: 2010Q2

REPORT INFORMATION
  Report Type: 
  Country: None (occurrence: None)
  Receive Date: 20100430
  Receipt Date: 20100421
  Transmission Date: 20101027
  Serious: No
  Sender: FDA-Public Use
  Company Number: US-ROXANE LABORATORIES, INC.-2010-RO-00456RO

PATIENT
  Sex: Female

DRUGS (3)
  1. FLUTICASONE PROPIONATE [Suspect]
     Indication: SINUS DISORDER
     Route: 045
     Dates: start: 20100415, end: 20100415
  2. MUCINEX [Concomitant]
  3. DECONGESTANT [Concomitant]

REACTIONS (2)
  - NAUSEA [None]
  - PRODUCT ODOUR ABNORMAL [None]
